FAERS Safety Report 6318551-1 (Version None)
Quarter: 2009Q3

REPORT INFORMATION
  Report Type: 
  Country: None (occurrence: None)
  Receive Date: 20090821
  Receipt Date: 20090811
  Transmission Date: 20100115
  Serious: No
  Sender: FDA-Public Use
  Company Number: PHHY2009CA32869

PATIENT
  Sex: Female

DRUGS (1)
  1. DIOVAN T30230++HY [Suspect]
     Indication: HYPERTENSION
     Dosage: 80 MG
     Route: 048
     Dates: end: 20080428

REACTIONS (2)
  - ANGER [None]
  - DIABETES MELLITUS [None]
